FAERS Safety Report 17088626 (Version 1)
Quarter: 2019Q4

REPORT INFORMATION
  Report Type: Spontaneous
  Country: US (occurrence: US)
  Receive Date: 20191031
  Receipt Date: 20191031
  Transmission Date: 20200122
  Serious: No
  Sender: FDA-Public Use
  Company Number: None

PATIENT
  Age: 82 Year
  Sex: Male

DRUGS (1)
  1. PREDNISONE 5 MG TAB WATSON [Suspect]
     Active Substance: PREDNISONE
     Route: 048
     Dates: start: 20191001

REACTIONS (3)
  - Blood pressure increased [None]
  - Therapy cessation [None]
  - Oedema peripheral [None]

NARRATIVE: CASE EVENT DATE: 20191017
